FAERS Safety Report 20342924 (Version 1)
Quarter: 2022Q1

REPORT INFORMATION
  Report Type: Spontaneous
  Country: US (occurrence: US)
  Receive Date: 20220117
  Receipt Date: 20220117
  Transmission Date: 20220424
  Serious: Yes (Hospitalization, Other)
  Sender: FDA-Public Use
  Company Number: US-ALXN-A202200372

PATIENT
  Age: 13 Year
  Sex: Female
  Weight: 53 kg

DRUGS (3)
  1. SOLIRIS [Suspect]
     Active Substance: ECULIZUMAB
     Indication: Haemolytic uraemic syndrome
     Dosage: 900 MG (15.5 MG/KG), UNK
     Route: 065
  2. SOLIRIS [Suspect]
     Active Substance: ECULIZUMAB
     Indication: Off label use
  3. PENICILLIN                         /00000901/ [Concomitant]
     Indication: Prophylaxis
     Dosage: UNK
     Route: 065

REACTIONS (5)
  - Seizure [Unknown]
  - Anuria [Not Recovered/Not Resolved]
  - Pyrexia [Unknown]
  - Blood creatinine increased [Unknown]
  - Off label use [Unknown]
